FAERS Safety Report 17030382 (Version 1)
Quarter: 2019Q4

REPORT INFORMATION
  Report Type: Spontaneous
  Country: US (occurrence: US)
  Receive Date: 20191114
  Receipt Date: 20191114
  Transmission Date: 20200122
  Serious: No
  Sender: FDA-Public Use
  Company Number: US-ALLERGAN-1901639US

PATIENT
  Age: 55 Year
  Sex: Female

DRUGS (3)
  1. COMBIGAN [Suspect]
     Active Substance: BRIMONIDINE TARTRATE\TIMOLOL MALEATE
     Indication: INTRAOCULAR PRESSURE INCREASED
     Dosage: 2 GTT, BID
     Route: 047
     Dates: start: 2018
  2. THYROID MED [Concomitant]
     Indication: THYROID DISORDER
     Dosage: UNK
     Route: 065
  3. BLOOD PRESSURE MED [Concomitant]
     Indication: HYPERTENSION
     Dosage: UNK
     Route: 065

REACTIONS (3)
  - Product dropper issue [Unknown]
  - Incorrect dose administered by product [Unknown]
  - Accidental exposure to product [Unknown]
